FAERS Safety Report 8347537-0 (Version None)
Quarter: 2012Q2

REPORT INFORMATION
  Report Type: 
  Country: None (occurrence: None)
  Receive Date: 20120509
  Receipt Date: 20120507
  Transmission Date: 20120825
  Serious: No
  Sender: FDA-Public Use
  Company Number: US-BAYER-2012-044989

PATIENT
  Age: 57 Year
  Sex: Male
  Weight: 113 kg

DRUGS (2)
  1. PRAVASTATIN [Concomitant]
  2. NAPROXEN SODIUM [Suspect]
     Indication: BACK PAIN
     Dosage: 2 U, QD
     Route: 048
     Dates: end: 20120507

REACTIONS (2)
  - LIMB DISCOMFORT [None]
  - PRURITUS [None]
